FAERS Safety Report 5690414-4 (Version None)
Quarter: 2008Q1

REPORT INFORMATION
  Report Type: 
  Country: None (occurrence: None)
  Receive Date: 20080331
  Receipt Date: 20080331
  Transmission Date: 20080703
  Serious: No
  Sender: FDA-Public Use
  Company Number: None

PATIENT
  Age: 14 Year
  Sex: Female
  Weight: 52.1637 kg

DRUGS (1)
  1. SINGULAIR [Suspect]

REACTIONS (4)
  - ABNORMAL BEHAVIOUR [None]
  - ANGER [None]
  - HOMICIDAL IDEATION [None]
  - SOCIAL AVOIDANT BEHAVIOUR [None]
